FAERS Safety Report 15999525 (Version 1)
Quarter: 2019Q1

REPORT INFORMATION
  Report Type: Spontaneous
  Country: US (occurrence: US)
  Receive Date: 20190222
  Receipt Date: 20190222
  Transmission Date: 20190418
  Serious: Yes (Other)
  Sender: FDA-Public Use
  Company Number: None

PATIENT
  Age: 44 Year
  Sex: Female
  Weight: 65.7 kg

DRUGS (4)
  1. AZELASTINE HCL NASAL [Suspect]
     Active Substance: AZELASTINE HYDROCHLORIDE
     Indication: NASAL CONGESTION
     Dosage: ?          QUANTITY:137 SPRAY(S);?
     Route: 055
     Dates: start: 20190221, end: 20190221
  2. ETHINYL ESTRADIOL [Concomitant]
     Active Substance: ETHINYL ESTRADIOL
  3. LEVONORGESTREL. [Concomitant]
     Active Substance: LEVONORGESTREL
  4. PROBIOTIC [Concomitant]
     Active Substance: PROBIOTICS NOS

REACTIONS (2)
  - Migraine [None]
  - Sinus headache [None]

NARRATIVE: CASE EVENT DATE: 20190221
